FAERS Safety Report 6209650-3 (Version None)
Quarter: 2009Q2

REPORT INFORMATION
  Report Type: 
  Country: None (occurrence: None)
  Receive Date: 20090529
  Receipt Date: 20090529
  Transmission Date: 20091009
  Serious: No
  Sender: FDA-Public Use
  Company Number: None

PATIENT
  Sex: Female
  Weight: 74.3899 kg

DRUGS (5)
  1. GAMUNEX [Suspect]
     Indication: IMMUNODEFICIENCY COMMON VARIABLE
     Dosage: 20GM MONTHLY IV DRIP
     Route: 041
     Dates: start: 20090205, end: 20090429
  2. ADVAIR HFA [Concomitant]
  3. SINGULAIR [Concomitant]
  4. ALENDRONATE [Concomitant]
  5. MAXAIR [Concomitant]

REACTIONS (1)
  - URTICARIA [None]
